FAERS Safety Report 23353859 (Version 2)
Quarter: 2024Q2

REPORT INFORMATION
  Report Type: Spontaneous
  Country: US (occurrence: US)
  Receive Date: 20240101
  Receipt Date: 20240518
  Transmission Date: 20240716
  Serious: No
  Sender: FDA-Public Use
  Company Number: US-SA-SAC20231221000573

PATIENT
  Age: 63 Year
  Sex: Male
  Weight: 84.368 kg

DRUGS (6)
  1. DUPIXENT [Suspect]
     Active Substance: DUPILUMAB
     Indication: Asthma
     Dosage: 600 MG, 1X
     Route: 058
     Dates: start: 202312, end: 202312
  2. DUPIXENT [Suspect]
     Active Substance: DUPILUMAB
     Indication: Dermatitis atopic
     Dosage: 300 MG, QOW
     Route: 058
     Dates: start: 202312, end: 202312
  3. PROLIA [Concomitant]
     Active Substance: DENOSUMAB
     Dosage: UNK
  4. FASENRA [Concomitant]
     Active Substance: BENRALIZUMAB
     Dosage: UNK
  5. PREDNISONE [Concomitant]
     Active Substance: PREDNISONE
  6. ALBUTEROL [Concomitant]
     Active Substance: ALBUTEROL
     Route: 055

REACTIONS (8)
  - Headache [Unknown]
  - Disorientation [Unknown]
  - Paraesthesia oral [Unknown]
  - Pain [Unknown]
  - Fatigue [Unknown]
  - Somnolence [Unknown]
  - Tongue pruritus [Unknown]
  - Brain fog [Unknown]

NARRATIVE: CASE EVENT DATE: 20231201
